FAERS Safety Report 16790328 (Version 1)
Quarter: 2019Q3

REPORT INFORMATION
  Report Type: Report from Study
  Country: US (occurrence: US)
  Receive Date: 20190910
  Receipt Date: 20190910
  Transmission Date: 20191005
  Serious: Yes (Hospitalization, Other)
  Sender: FDA-Public Use
  Company Number: US-SA-2019SA240050

PATIENT
  Age: 34 Year
  Sex: Male

DRUGS (1)
  1. ALEMTUZUMAB [Suspect]
     Active Substance: ALEMTUZUMAB
     Indication: MULTIPLE SCLEROSIS
     Dosage: 12 MG, QD
     Route: 041
     Dates: start: 20190819, end: 20190823

REACTIONS (9)
  - Syncope [Unknown]
  - Consciousness fluctuating [Recovering/Resolving]
  - Anal incontinence [Recovering/Resolving]
  - Pyrexia [Unknown]
  - Hyperhidrosis [Unknown]
  - Insomnia [Recovering/Resolving]
  - Unresponsive to stimuli [Recovering/Resolving]
  - Multiple sclerosis relapse [Recovering/Resolving]
  - Dizziness [Unknown]

NARRATIVE: CASE EVENT DATE: 20190824
